FAERS Safety Report 6824010-X (Version None)
Quarter: 2010Q3

REPORT INFORMATION
  Report Type: 
  Country: None (occurrence: None)
  Receive Date: 20100708
  Receipt Date: 20060930
  Transmission Date: 20110219
  Serious: No
  Sender: FDA-Public Use
  Company Number: US-PFIZER INC-2006120359

PATIENT
  Sex: Female
  Weight: 66.68 kg

DRUGS (7)
  1. CHANTIX [Suspect]
     Indication: SMOKING CESSATION THERAPY
     Dates: start: 20060925
  2. LEXAPRO [Concomitant]
  3. VALTREX [Concomitant]
  4. AMBIEN [Concomitant]
  5. REQUIP [Concomitant]
  6. ACETYLSALICYLIC ACID [Concomitant]
  7. VITAMINS [Concomitant]

REACTIONS (1)
  - INSOMNIA [None]
